FAERS Safety Report 16945500 (Version 2)
Quarter: 2019Q4

REPORT INFORMATION
  Report Type: Spontaneous
  Country: GB (occurrence: GB)
  Receive Date: 20191022
  Receipt Date: 20191101
  Transmission Date: 20200122
  Serious: Yes (Death)
  Sender: FDA-Public Use
  Company Number: GB-PFIZER INC-2019453584

PATIENT
  Age: 6 Decade
  Sex: Male

DRUGS (1)
  1. MYLOTARG [Suspect]
     Active Substance: GEMTUZUMAB OZOGAMICIN
     Indication: ACUTE MYELOID LEUKAEMIA
     Dosage: UNK (USED IN APPROXIMATELY 6 MG/M2 DOSE)

REACTIONS (2)
  - Venoocclusive liver disease [Fatal]
  - Hepatic failure [Fatal]
